FAERS Safety Report 9943331 (Version 1)
Quarter: 2014Q1

REPORT INFORMATION
  Report Type: Spontaneous
  Country: IT (occurrence: IT)
  Receive Date: 20140303
  Receipt Date: 20140303
  Transmission Date: 20141002
  Serious: Yes (Hospitalization)
  Sender: FDA-Public Use
  Company Number: PHHY2014IT023599

PATIENT
  Age: 39 Year
  Sex: Female

DRUGS (4)
  1. LANSOPRAZOLE [Suspect]
     Dosage: 15 MG, QD
     Route: 048
     Dates: start: 20130103, end: 20140206
  2. DEDIOL [Suspect]
     Dosage: 0.25 UG, QD
     Route: 048
     Dates: start: 20140129, end: 20140206
  3. EXINEF [Suspect]
     Dosage: 60 MG, QD
     Route: 048
     Dates: start: 20130325, end: 20140206
  4. CARDIOASPIRIN [Suspect]
     Dosage: 100 MG, QD
     Route: 048

REACTIONS (3)
  - Duodenal ulcer [Recovering/Resolving]
  - Melaena [Recovering/Resolving]
  - Circulatory collapse [Recovering/Resolving]
